FAERS Safety Report 21548549 (Version 6)
Quarter: 2023Q2

REPORT INFORMATION
  Report Type: Spontaneous
  Country: US (occurrence: US)
  Receive Date: 20221103
  Receipt Date: 20230425
  Transmission Date: 20230721
  Serious: Yes (Other)
  Sender: FDA-Public Use
  Company Number: US-BRISTOL-MYERS SQUIBB COMPANY-2022-131621

PATIENT
  Age: 62 Year
  Sex: Female

DRUGS (3)
  1. REVLIMID [Suspect]
     Active Substance: LENALIDOMIDE
     Indication: Plasma cell myeloma
     Route: 048
  2. REVLIMID [Suspect]
     Active Substance: LENALIDOMIDE
     Route: 048
     Dates: start: 202201
  3. REVLIMID [Suspect]
     Active Substance: LENALIDOMIDE
     Dosage: FREQUENCY- OTHER
     Route: 048
     Dates: start: 202212

REACTIONS (14)
  - Hot flush [Unknown]
  - Retinal detachment [Unknown]
  - Lymphoedema [Recovering/Resolving]
  - Vitreous disorder [Unknown]
  - Visual impairment [Unknown]
  - Irritable bowel syndrome [Unknown]
  - Gastrointestinal disorder [Not Recovered/Not Resolved]
  - Diarrhoea [Unknown]
  - Constipation [Unknown]
  - Dysphonia [Recovering/Resolving]
  - Fatigue [Unknown]
  - Muscular weakness [Unknown]
  - Abdominal distension [Unknown]
  - Localised oedema [Unknown]

NARRATIVE: CASE EVENT DATE: 20230103
